FAERS Safety Report 12887051 (Version 1)
Quarter: 2016Q4

REPORT INFORMATION
  Report Type: Spontaneous
  Country: US (occurrence: US)
  Receive Date: 20161026
  Receipt Date: 20161026
  Transmission Date: 20170207
  Serious: Yes (Hospitalization)
  Sender: FDA-Public Use
  Company Number: US-MALLINCKRODT-T201605336

PATIENT
  Sex: Male

DRUGS (16)
  1. GABLOFEN [Suspect]
     Active Substance: BACLOFEN
     Indication: MUSCLE SPASTICITY
     Dosage: 600 ?G, QD
     Route: 037
     Dates: end: 20161007
  2. RELISTOR [Concomitant]
     Active Substance: METHYLNALTREXONE BROMIDE
  3. VITAMIN D3 [Concomitant]
     Active Substance: CHOLECALCIFEROL
  4. MIRALAX [Concomitant]
     Active Substance: POLYETHYLENE GLYCOL 3350
  5. DOCUSATE [Concomitant]
     Active Substance: DOCUSATE
  6. MULTIVITAMIN [Concomitant]
     Active Substance: VITAMINS
  7. LYRICA [Concomitant]
     Active Substance: PREGABALIN
  8. OXYCONTIN [Concomitant]
     Active Substance: OXYCODONE HYDROCHLORIDE
  9. VITAMIN C [Concomitant]
     Active Substance: ASCORBIC ACID
  10. TESTOSTERON [Concomitant]
     Active Substance: TESTOSTERONE
     Route: 051
  11. TRENTAL [Concomitant]
     Active Substance: PENTOXIFYLLINE
  12. FIBER [Concomitant]
     Active Substance: PSYLLIUM HUSK
  13. VITAMIN B12 [Concomitant]
     Active Substance: CYANOCOBALAMIN
  14. IBUPROFEN. [Concomitant]
     Active Substance: IBUPROFEN
     Dosage: PRN
  15. MERREM [Concomitant]
     Active Substance: MEROPENEM
  16. VALIUM [Concomitant]
     Active Substance: DIAZEPAM
     Dosage: PRN

REACTIONS (7)
  - Pain in extremity [Unknown]
  - Intervertebral discitis [Unknown]
  - Central nervous system inflammation [Unknown]
  - Osteomyelitis [Unknown]
  - Extradural abscess [Unknown]
  - Muscular weakness [Unknown]
  - Pseudomonas infection [Unknown]

NARRATIVE: CASE EVENT DATE: 20160717
